FAERS Safety Report 11255665 (Version 1)
Quarter: 2015Q3

REPORT INFORMATION
  Report Type: Spontaneous
  Country: FR (occurrence: FR)
  Receive Date: 20150709
  Receipt Date: 20150709
  Transmission Date: 20151125
  Serious: Yes (Hospitalization, Other)
  Sender: FDA-Public Use
  Company Number: FR-PFIZER INC-2015224877

PATIENT
  Age: 90 Year
  Sex: Female

DRUGS (15)
  1. BETASERC /00141801/ [Suspect]
     Active Substance: BETAHISTINE
     Dosage: 24 MG, 2X/DAY
     Route: 048
  2. PARIET [Suspect]
     Active Substance: RABEPRAZOLE SODIUM
     Dosage: 20 MG, 1X/DAY
     Route: 048
  3. DOLIPRANE [Suspect]
     Active Substance: ACETAMINOPHEN
     Dosage: 500 MG, 3X/DAY
     Route: 048
  4. DOLENIO /00943602/ [Suspect]
     Active Substance: GLUCOSAMINE
     Dosage: 1 DF, 1X/DAY
     Route: 048
  5. PRIMPERAN [Suspect]
     Active Substance: METOCLOPRAMIDE HYDROCHLORIDE
     Dosage: 10 MG TO 30 MG PER DAY
     Route: 048
     Dates: start: 20150527
  6. GALANTAMINE HYDROBROMIDE. [Suspect]
     Active Substance: GALANTAMINE HYDROBROMIDE
     Indication: DEMENTIA ALZHEIMER^S TYPE
     Dosage: 8 MG, 1X/DAY
     Route: 048
  7. EBIXA [Suspect]
     Active Substance: MEMANTINE HYDROCHLORIDE
     Indication: DEMENTIA ALZHEIMER^S TYPE
     Dosage: 10 MG, 1X/DAY
     Route: 048
  8. LOPERAMIDE CHLORHYDRATE [Suspect]
     Active Substance: LOPERAMIDE HYDROCHLORIDE
     Dosage: UNK
     Route: 048
     Dates: start: 20150527
  9. IKOREL [Suspect]
     Active Substance: NICORANDIL
     Dosage: 10 MG, 2X/DAY
     Route: 048
  10. SPASFON /00934601/ [Suspect]
     Active Substance: PHLOROGLUCINOL
     Dosage: UNK
     Route: 048
     Dates: start: 20150527
  11. IBUFETUM [Suspect]
     Active Substance: IBUPROFEN
     Dosage: UNK
     Route: 003
     Dates: start: 20150527
  12. AMLOR [Suspect]
     Active Substance: AMLODIPINE BESYLATE
     Dosage: 5 MG, 1X/DAY
     Route: 048
  13. NORSET [Suspect]
     Active Substance: MIRTAZAPINE
     Dosage: 15 MG, 1X/DAY
     Route: 048
  14. TIAPRIDAL /00435701/ [Suspect]
     Active Substance: TIAPRIDE HYDROCHLORIDE
     Dosage: 25 MG, 1X/DAY
     Route: 048
  15. COAPROVEL [Suspect]
     Active Substance: HYDROCHLOROTHIAZIDE\IRBESARTAN
     Dosage: 1 DF, 1X/DAY
     Route: 048

REACTIONS (3)
  - Loss of consciousness [Unknown]
  - Hyponatraemia [Unknown]
  - Fall [Unknown]

NARRATIVE: CASE EVENT DATE: 20150604
